FAERS Safety Report 11826443 (Version 3)
Quarter: 2019Q3

REPORT INFORMATION
  Report Type: Report from Study
  Country: DE (occurrence: DE)
  Receive Date: 20151211
  Receipt Date: 20190827
  Transmission Date: 20191004
  Serious: Yes (Death, Life-Threatening, Hospitalization)
  Sender: FDA-Public Use
  Company Number: DE-ROCHE-1676170

PATIENT
  Age: 79 Year
  Sex: Female

DRUGS (6)
  1. ENBREL [Suspect]
     Active Substance: ETANERCEPT
     Indication: RHEUMATOID ARTHRITIS
     Route: 065
     Dates: start: 200704, end: 200807
  2. RITUXIMAB. [Suspect]
     Active Substance: RITUXIMAB
     Indication: RHEUMATOID ARTHRITIS
     Dosage: ON DEC/2008, OCT/2009, APR/2011, FEB/2012, AUG/2012, JAN/2013, JAN/2014 AND AUG/2014, SHE RECEIVED R
     Route: 065
     Dates: start: 200703
  3. METHOTREXAT [METHOTREXATE] [Suspect]
     Active Substance: METHOTREXATE
     Indication: RHEUMATOID ARTHRITIS
     Route: 065
  4. BONVIVA [Concomitant]
     Active Substance: IBANDRONATE SODIUM
     Route: 065
  5. DEKRISTOL [Concomitant]
     Active Substance: CHOLECALCIFEROL
  6. CLOPIDOGREL [Concomitant]
     Active Substance: CLOPIDOGREL BISULFATE

REACTIONS (3)
  - Chest wall tumour [Fatal]
  - Sepsis [Fatal]
  - Metastases to pleura [Not Recovered/Not Resolved]

NARRATIVE: CASE EVENT DATE: 201411
